FAERS Safety Report 7815061-7 (Version None)
Quarter: 2011Q4

REPORT INFORMATION
  Report Type: 
  Country: None (occurrence: None)
  Receive Date: 20111014
  Receipt Date: 20111005
  Transmission Date: 20120403
  Serious: Yes (Death, Hospitalization, Other)
  Sender: FDA-Public Use
  Company Number: US-BAXTER-2011BH030124

PATIENT
  Sex: Female

DRUGS (3)
  1. DIANEAL [Suspect]
     Indication: PERITONEAL DIALYSIS
     Route: 033
     Dates: end: 20110920
  2. DIANEAL [Suspect]
     Route: 010
     Dates: start: 20110805, end: 20110920
  3. DIANEAL [Suspect]
     Indication: PERITONEAL DIALYSIS
     Route: 033
     Dates: end: 20110805

REACTIONS (5)
  - DEATH [None]
  - WRIST FRACTURE [None]
  - EMPHYSEMA [None]
  - FALL [None]
  - ASTHENIA [None]
